FAERS Safety Report 17579672 (Version 1)
Quarter: 2020Q1

REPORT INFORMATION
  Report Type: Spontaneous
  Country: GB (occurrence: GB)
  Receive Date: 20200325
  Receipt Date: 20200325
  Transmission Date: 20200409
  Serious: Yes (Death)
  Sender: FDA-Public Use
  Company Number: GB-TEVA-2020-GB-1208607

PATIENT
  Age: 84 Year
  Sex: Male

DRUGS (19)
  1. CO-AMOXICLAV [Suspect]
     Active Substance: AMOXICILLIN\CLAVULANATE POTASSIUM
     Indication: URINARY TRACT INFECTION
     Dosage: 500/125
     Route: 048
     Dates: start: 20190925, end: 20191001
  2. ADCAL-D3 [Concomitant]
     Active Substance: CALCIUM CARBONATE\CHOLECALCIFEROL
  3. DOXYCYCLINE. [Suspect]
     Active Substance: DOXYCYCLINE
     Indication: CHRONIC OBSTRUCTIVE PULMONARY DISEASE
     Dosage: 100 MILLIGRAM
     Route: 048
     Dates: start: 20190812, end: 20190819
  4. OMEPRAZOLE. [Concomitant]
     Active Substance: OMEPRAZOLE
  5. RIVAROXABAN [Concomitant]
     Active Substance: RIVAROXABAN
  6. CHEMYDUR XL [Concomitant]
     Active Substance: ISOSORBIDE MONONITRATE
  7. NITROFURANTOIN. [Suspect]
     Active Substance: NITROFURANTOIN
     Indication: URINARY TRACT INFECTION
     Dosage: HAD TWO COURSES ONE STARTING 25TH AND ANOTHER 5/12/19:200 MILLIGRAM
     Route: 048
     Dates: start: 20191125, end: 20191130
  8. DUORESP SPIROMAX [Concomitant]
     Active Substance: BUDESONIDE\FORMOTEROL
  9. FOLIC ACID. [Concomitant]
     Active Substance: FOLIC ACID
  10. LORAZEPAM. [Concomitant]
     Active Substance: LORAZEPAM
  11. CARBOCISTEINE [Concomitant]
     Active Substance: CARBOCYSTEINE
  12. BISOPROLOL [Concomitant]
     Active Substance: BISOPROLOL
  13. FERROUS SULFATE. [Concomitant]
     Active Substance: FERROUS SULFATE
  14. MIRTAZAPINE. [Concomitant]
     Active Substance: MIRTAZAPINE
  15. SALBUTAMOL [Concomitant]
     Active Substance: ALBUTEROL
  16. NITROFURANTOIN. [Suspect]
     Active Substance: NITROFURANTOIN
     Dates: start: 20191205
  17. PARACETAMOL [Concomitant]
     Active Substance: ACETAMINOPHEN
  18. FUROSEMIDE. [Concomitant]
     Active Substance: FUROSEMIDE
  19. BRALTUS [Concomitant]
     Active Substance: TIOTROPIUM BROMIDE

REACTIONS (1)
  - Clostridium difficile infection [Fatal]

NARRATIVE: CASE EVENT DATE: 20191227
